FAERS Safety Report 7321642-X (Version None)
Quarter: 2011Q1

REPORT INFORMATION
  Report Type: 
  Country: None (occurrence: None)
  Receive Date: 20110228
  Receipt Date: 20101025
  Transmission Date: 20110831
  Serious: No
  Sender: FDA-Public Use
  Company Number: A0888640B

PATIENT
  Age: 9 Month

DRUGS (2)
  1. NO CONCURRENT MEDICATION [Concomitant]
  2. VALTREX [Suspect]
     Indication: DRUG EXPOSURE VIA BREAST MILK
     Route: 063
     Dates: start: 20100101

REACTIONS (1)
  - DRUG EXPOSURE VIA BREAST MILK [None]
